FAERS Safety Report 4957818-6 (Version None)
Quarter: 2006Q1

REPORT INFORMATION
  Report Type: 
  Country: None (occurrence: None)
  Receive Date: 20060330
  Receipt Date: 20060313
  Transmission Date: 20060701
  Serious: Yes (Hospitalization, Disabling)
  Sender: FDA-Public Use
  Company Number: 2006AC00438

PATIENT
  Age: 24559 Day
  Sex: Male
  Weight: 60 kg

DRUGS (10)
  1. IRESSA [Suspect]
     Indication: SQUAMOUS CELL CARCINOMA
     Route: 048
     Dates: start: 20051207, end: 20060215
  2. IRESSA [Suspect]
     Route: 048
     Dates: start: 20060220, end: 20060303
  3. CISPLATIN [Concomitant]
  4. CARBOPLATINE [Concomitant]
  5. TAXOTERE [Concomitant]
  6. DUROGESIC 50 [Concomitant]
     Indication: PAIN
     Dosage: STARTED SEVEREAL MONTHS PRIOR TO SAE
     Route: 058
  7. MS DIRECT [Concomitant]
     Indication: PAIN
     Dosage: RECEIVED FOR SEVERAL MONTHS
     Route: 048
  8. OMEPRAZOLE [Concomitant]
     Indication: OESOPHAGITIS
     Dosage: RECEIVED 'SINCE MONTHS'
     Route: 048
  9. LORAZEPAM [Concomitant]
     Indication: PROPHYLAXIS
     Route: 048
     Dates: start: 20051031
  10. REGULTON [Concomitant]
     Indication: HYPOTENSION
     Route: 048
     Dates: start: 20051031

REACTIONS (7)
  - ANOREXIA [None]
  - DRUG INTOLERANCE [None]
  - FATIGUE [None]
  - GASTROINTESTINAL DISORDER [None]
  - NAUSEA [None]
  - VOMITING [None]
  - WEIGHT DECREASED [None]
